FAERS Safety Report 5346343-9 (Version None)
Quarter: 2007Q2

REPORT INFORMATION
  Report Type: 
  Country: None (occurrence: None)
  Receive Date: 20070430
  Receipt Date: 20070122
  Transmission Date: 20071010
  Serious: No
  Sender: FDA-Public Use
  Company Number: 012748

PATIENT
  Age: 48 Year
  Sex: Male

DRUGS (6)
  1. PRIALT [Suspect]
     Indication: MYELITIS TRANSVERSE
     Dosage: SEE IMAGE
     Route: 037
     Dates: end: 20061211
  2. PRIALT [Suspect]
     Indication: MYELITIS TRANSVERSE
     Dosage: SEE IMAGE
     Route: 037
     Dates: start: 20061211
  3. BACLOFEN [Concomitant]
  4. METHADONE HCL [Concomitant]
  5. NEURONTIN [Concomitant]
  6. MODAFINIL [Concomitant]

REACTIONS (5)
  - DECREASED APPETITE [None]
  - MEMORY IMPAIRMENT [None]
  - NAUSEA [None]
  - URINARY INCONTINENCE [None]
  - URINARY RETENTION [None]
